FAERS Safety Report 7613485-4 (Version None)
Quarter: 2011Q3

REPORT INFORMATION
  Report Type: 
  Country: None (occurrence: None)
  Receive Date: 20110708
  Receipt Date: 20110630
  Transmission Date: 20111222
  Serious: Yes (Death, Hospitalization, Other)
  Sender: FDA-Public Use
  Company Number: IL-ACCORD-009273

PATIENT
  Age: 16 Year
  Sex: Male

DRUGS (6)
  1. IMMUNE GLOBULIN (HUMAN) [Suspect]
     Indication: PRODUCT USED FOR UNKNOWN INDICATION
  2. CARBAMAZEPINE [Concomitant]
     Indication: PRODUCT USED FOR UNKNOWN INDICATION
  3. VALPROIC ACID [Suspect]
     Indication: PRODUCT USED FOR UNKNOWN INDICATION
  4. INOSIPLEX [Concomitant]
  5. LEVETIRACETAM [Suspect]
     Indication: PRODUCT USED FOR UNKNOWN INDICATION
  6. INTERFERON BETA-1A [Concomitant]

REACTIONS (4)
  - CONDITION AGGRAVATED [None]
  - SUBACUTE SCLEROSING PANENCEPHALITIS [None]
  - APALLIC SYNDROME [None]
  - DRUG INEFFECTIVE [None]
